FAERS Safety Report 14558724 (Version 1)
Quarter: 2018Q1

REPORT INFORMATION
  Report Type: Spontaneous
  Country: ES (occurrence: ES)
  Receive Date: 20180221
  Receipt Date: 20180221
  Transmission Date: 20180509
  Serious: Yes (Hospitalization)
  Sender: FDA-Public Use
  Company Number: ES-BAUSCH-BL-2018-004447

PATIENT
  Age: 73 Year
  Sex: Male

DRUGS (6)
  1. ALOPURINOL CINFA [Concomitant]
     Indication: PRODUCT USED FOR UNKNOWN INDICATION
     Dosage: 100 TABLETS
     Route: 048
     Dates: start: 20120209
  2. OMEPRAZOL CINFAMED [Concomitant]
     Indication: PRODUCT USED FOR UNKNOWN INDICATION
     Dosage: HARD CAPSULES, 28 CAPSULES?GASTRO-RESISTANT HARD CAPSULE EFG
     Route: 048
     Dates: start: 20111219
  3. ENALAPRIL/HYDROCHLOROTIAZIDE CINFA [Concomitant]
     Indication: PRODUCT USED FOR UNKNOWN INDICATION
     Dosage: 28 TABLETS
     Route: 048
     Dates: start: 20111219
  4. SINTROM [Suspect]
     Active Substance: ACENOCOUMAROL
     Indication: PRODUCT USED FOR UNKNOWN INDICATION
     Route: 048
  5. DICLOFENACO [Suspect]
     Active Substance: DICLOFENAC
     Indication: OSTEITIS
     Dosage: 12 HOURLY
     Route: 048
     Dates: start: 20171228, end: 20180118
  6. AMLODIPINO CINFA [Concomitant]
     Indication: PRODUCT USED FOR UNKNOWN INDICATION
     Dosage: 30 TABLETS
     Route: 048
     Dates: start: 20111219

REACTIONS (2)
  - Duodenal ulcer [Recovered/Resolved]
  - Haematochezia [Recovered/Resolved]

NARRATIVE: CASE EVENT DATE: 20180118
